FAERS Safety Report 5885661-2 (Version None)
Quarter: 2008Q3

REPORT INFORMATION
  Report Type: 
  Country: None (occurrence: None)
  Receive Date: 20080916
  Receipt Date: 20080916
  Transmission Date: 20090109
  Serious: Yes (Other)
  Sender: FDA-Public Use
  Company Number: CA-GILEAD-2008-0017478

PATIENT
  Sex: Male

DRUGS (2)
  1. VIREAD [Suspect]
     Indication: HEPATITIS B
  2. LAMIVUDINE [Concomitant]
     Indication: HEPATITIS B

REACTIONS (1)
  - SUDDEN HEARING LOSS [None]
